FAERS Safety Report 11083672 (Version 2)
Quarter: 2015Q3

REPORT INFORMATION
  Report Type: Spontaneous
  Country: JP (occurrence: JP)
  Receive Date: 20150501
  Receipt Date: 20150820
  Transmission Date: 20151125
  Serious: Yes (Death)
  Sender: FDA-Public Use
  Company Number: JP-TEVA-558394ISR

PATIENT
  Age: 67 Year
  Sex: Female
  Weight: 61 kg

DRUGS (10)
  1. E-FEN BUCCAL [Suspect]
     Active Substance: FENTANYL CITRATE
     Indication: BREAKTHROUGH PAIN
     Dosage: DAILY DOSE: 100MCG-40MCG
     Route: 002
     Dates: start: 20150209, end: 20150223
  2. FENTOS [Concomitant]
     Active Substance: FENTANYL
     Indication: CANCER PAIN
     Dosage: 1 MILLIGRAM DAILY;
     Route: 062
     Dates: start: 20150213, end: 20150306
  3. SODIUM RABEPRAZOLE [Concomitant]
     Active Substance: RABEPRAZOLE SODIUM
     Indication: GASTROOESOPHAGEAL REFLUX DISEASE
     Dosage: 15 MILLIGRAM DAILY;
     Route: 048
     Dates: end: 20150301
  4. ZOLPIDEM TARTRATE OD [Concomitant]
     Active Substance: ZOLPIDEM TARTRATE
     Indication: INSOMNIA
     Dosage: 5 MILLIGRAM DAILY;
     Route: 048
     Dates: end: 20150301
  5. LIXIANA [Concomitant]
     Active Substance: EDOXABAN TOSILATE MONOHYDRATE
     Indication: OVARIAN VEIN THROMBOSIS
     Dosage: 30 MILLIGRAM DAILY;
     Route: 048
     Dates: end: 20150301
  6. FENTOS [Concomitant]
     Active Substance: FENTANYL
     Dosage: 2 MILLIGRAM DAILY;
     Route: 062
     Dates: start: 20150215, end: 20150306
  7. FENTOS [Concomitant]
     Active Substance: FENTANYL
     Dosage: 4 MILLIGRAM DAILY;
     Route: 062
     Dates: start: 20150307, end: 20150309
  8. FENTOS [Concomitant]
     Active Substance: FENTANYL
     Dosage: 4 MILLIGRAM DAILY;
     Route: 062
     Dates: start: 20150219, end: 20150302
  9. E-FEN BUCCAL [Suspect]
     Active Substance: FENTANYL CITRATE
     Dosage: 100 MICROGRAM DAILY; DAILY DOSE: 100MCG-400MCG
     Route: 002
     Dates: start: 20150224, end: 20150306
  10. FENTANYL. [Concomitant]
     Active Substance: FENTANYL
     Indication: CANCER PAIN
     Dosage: 4.2 MILLIGRAM DAILY;
     Route: 062
     Dates: start: 20150209, end: 20150215

REACTIONS (1)
  - Uterine cancer [Fatal]

NARRATIVE: CASE EVENT DATE: 20150309
